FAERS Safety Report 10246399 (Version 1)
Quarter: 2014Q2

REPORT INFORMATION
  Report Type: Spontaneous
  Country: US (occurrence: US)
  Receive Date: 20140619
  Receipt Date: 20140619
  Transmission Date: 20141212
  Serious: No
  Sender: FDA-Public Use
  Company Number: US-PFIZER INC-2014167183

PATIENT
  Age: 74 Year
  Sex: Female
  Weight: 61.2 kg

DRUGS (1)
  1. ESTROGENS CONJUGATED [Suspect]
     Dosage: UNK

REACTIONS (1)
  - Hot flush [Unknown]
